FAERS Safety Report 5736907-2 (Version None)
Quarter: 2008Q2

REPORT INFORMATION
  Report Type: 
  Country: None (occurrence: None)
  Receive Date: 20080509
  Receipt Date: 20080428
  Transmission Date: 20081010
  Serious: Yes (Other)
  Sender: FDA-Public Use
  Company Number: B0519398A

PATIENT
  Age: 47 Year
  Sex: Male

DRUGS (9)
  1. ROSIGLITAZONE MALEATE [Suspect]
  2. MYCOPHENOLATE MOFETIL [Suspect]
     Indication: SECONDARY IMMUNODEFICIENCY
     Dosage: 500 MG/TWICE PER DAY/UNKNOWN
  3. CYCLOSPORINE [Concomitant]
  4. NIFEDIPINE [Concomitant]
  5. FUROSEMIDE [Concomitant]
  6. SODIUM BICARBONATE [Concomitant]
  7. ALLOPURINOL [Concomitant]
  8. RAMIPRIL [Concomitant]
  9. CALCITRIOL [Concomitant]

REACTIONS (3)
  - ANAEMIA [None]
  - DRUG INTERACTION [None]
  - ERYTHROPOIESIS ABNORMAL [None]
